FAERS Safety Report 20964832 (Version 1)
Quarter: 2022Q2

REPORT INFORMATION
  Report Type: Spontaneous
  Country: US (occurrence: None)
  Receive Date: 20220616
  Receipt Date: 20220616
  Transmission Date: 20220721
  Serious: Yes (Hospitalization)
  Sender: FDA-Public Use
  Company Number: 2022A218435

PATIENT
  Age: 58 Year
  Sex: Female
  Weight: 84.4 kg

DRUGS (3)
  1. FASENRA [Suspect]
     Active Substance: BENRALIZUMAB
     Indication: Asthma
     Route: 058
     Dates: start: 2018, end: 2019
  2. FASENRA [Suspect]
     Active Substance: BENRALIZUMAB
     Indication: Multiple allergies
     Route: 058
     Dates: start: 2018, end: 2019
  3. METFORMIN [Concomitant]
     Active Substance: METFORMIN HYDROCHLORIDE
     Indication: Glucose tolerance impaired
     Route: 048

REACTIONS (9)
  - Wheezing [Unknown]
  - Lung disorder [Unknown]
  - COVID-19 [Recovered/Resolved]
  - Hypersensitivity [Unknown]
  - Tongue erythema [Recovered/Resolved]
  - Mouth ulceration [Recovered/Resolved]
  - Blood glucose increased [Unknown]
  - Glucose tolerance impaired [Unknown]
  - Product dose omission issue [Unknown]

NARRATIVE: CASE EVENT DATE: 20190101
